FAERS Safety Report 17277710 (Version 1)
Quarter: 2020Q1

REPORT INFORMATION
  Report Type: Spontaneous
  Country: US (occurrence: US)
  Receive Date: 20191227
  Receipt Date: 20191227
  Transmission Date: 20200409
  Serious: No
  Sender: FDA-Public Use
  Company Number: None

PATIENT
  Age: 60 Year

DRUGS (1)
  1. ALPRAZOLAM 0.5MG [Suspect]
     Active Substance: ALPRAZOLAM
     Route: 048
     Dates: start: 201911, end: 20191226

REACTIONS (1)
  - Suicidal ideation [None]

NARRATIVE: CASE EVENT DATE: 20191201
